FAERS Safety Report 6111807-7 (Version None)
Quarter: 2009Q1

REPORT INFORMATION
  Report Type: 
  Country: None (occurrence: None)
  Receive Date: 20090311
  Receipt Date: 20090226
  Transmission Date: 20090719
  Serious: Yes (Hospitalization)
  Sender: FDA-Public Use
  Company Number: CN-ROCHE-613973

PATIENT
  Sex: Male
  Weight: 66 kg

DRUGS (4)
  1. MYCOPHENOLATE MOFETIL [Suspect]
     Route: 048
     Dates: start: 20081117
  2. TACROLIMUS [Suspect]
     Route: 048
     Dates: start: 20071010
  3. TACROLIMUS [Suspect]
     Route: 048
     Dates: start: 20090211
  4. INSULIN [Suspect]
     Indication: DRUG USE FOR UNKNOWN INDICATION
     Dosage: 8 UNITS, TWICE PER DAY
     Route: 042
     Dates: start: 20071010

REACTIONS (1)
  - TRANSPLANT REJECTION [None]
